FAERS Safety Report 18623352 (Version 1)
Quarter: 2020Q4

REPORT INFORMATION
  Report Type: Spontaneous
  Country: CA (occurrence: CA)
  Receive Date: 20201216
  Receipt Date: 20201216
  Transmission Date: 20210114
  Serious: Yes (Other)
  Sender: FDA-Public Use
  Company Number: CA-BAYER-2020-272484

PATIENT
  Age: 61 Year
  Sex: Female

DRUGS (7)
  1. CIPROFLOXACIN MONOHYDROCHLORIDE [Suspect]
     Active Substance: CIPROFLOXACIN
     Indication: NEPHROLITHIASIS
     Dosage: UNK
  2. BELIMUMAB [Suspect]
     Active Substance: BELIMUMAB
     Indication: SYSTEMIC LUPUS ERYTHEMATOSUS
     Route: 058
  3. CYMBALTA [Suspect]
     Active Substance: DULOXETINE HYDROCHLORIDE
     Indication: PRODUCT USED FOR UNKNOWN INDICATION
     Dosage: 30 MG
  4. CYMBALTA [Suspect]
     Active Substance: DULOXETINE HYDROCHLORIDE
     Indication: PRODUCT USED FOR UNKNOWN INDICATION
     Dosage: 60 MG
  5. OLMETEC [Suspect]
     Active Substance: OLMESARTAN MEDOXOMIL
     Indication: BLOOD PRESSURE MEASUREMENT
     Dosage: UNK
  6. ACCUTANE [Suspect]
     Active Substance: ISOTRETINOIN
     Indication: EAR DISCOMFORT
     Route: 065
  7. MACROBID [CLARITHROMYCIN] [Suspect]
     Active Substance: CLARITHROMYCIN
     Indication: NEPHROLITHIASIS
     Dosage: UNK

REACTIONS (31)
  - Arthritis [Recovered/Resolved]
  - Spinal disorder [Recovered/Resolved]
  - Hand deformity [Recovered/Resolved]
  - Joint dislocation [Recovered/Resolved]
  - Walking aid user [Recovered/Resolved]
  - Blood cholesterol abnormal [Recovered/Resolved]
  - Inflammation [Recovered/Resolved]
  - Nasopharyngitis [Recovered/Resolved]
  - Poor quality sleep [Recovered/Resolved]
  - Blood pressure increased [Recovered/Resolved]
  - Drug ineffective [Recovered/Resolved]
  - Gait disturbance [Recovered/Resolved]
  - Loss of personal independence in daily activities [Recovered/Resolved]
  - Personality change due to a general medical condition [Recovered/Resolved]
  - Product dose omission issue [Recovered/Resolved]
  - Arthropathy [Recovered/Resolved]
  - Nephrolithiasis [Recovered/Resolved]
  - Pain [Recovered/Resolved]
  - Social problem [Recovered/Resolved]
  - Arthralgia [Recovered/Resolved]
  - Hypersomnia [Recovered/Resolved]
  - Kidney infection [Recovered/Resolved]
  - Renal disorder [Recovered/Resolved]
  - Skin induration [Recovered/Resolved]
  - Vein disorder [Recovered/Resolved]
  - Calcinosis [Recovered/Resolved]
  - Urine abnormality [Recovered/Resolved]
  - Varicose vein [Recovered/Resolved]
  - Blood pressure decreased [Recovered/Resolved]
  - Multiple allergies [Recovered/Resolved]
  - SLE arthritis [Recovered/Resolved]
